FAERS Safety Report 9344984 (Version 1)
Quarter: 2013Q2

REPORT INFORMATION
  Report Type: Spontaneous
  Country: FR (occurrence: FR)
  Receive Date: 20130612
  Receipt Date: 20130612
  Transmission Date: 20140414
  Serious: Yes (Hospitalization)
  Sender: FDA-Public Use
  Company Number: FR-US-EMD SERONO, INC.-7216111

PATIENT
  Age: 27 Year
  Sex: Female

DRUGS (4)
  1. CETROTIDE (CETRORELIX ACETATE FOR INJECTION) [Suspect]
     Indication: IN VITRO FERTILISATION
     Route: 042
     Dates: start: 20130320, end: 20130328
  2. OVITRELLE [Suspect]
     Indication: IN VITRO FERTILISATION
     Route: 042
     Dates: start: 20130328, end: 20130328
  3. PUREGON [Suspect]
     Indication: IN VITRO FERTILISATION
     Route: 042
     Dates: start: 20130315, end: 20130326
  4. PUREGON [Suspect]
     Route: 042
     Dates: start: 20130327, end: 20130327

REACTIONS (1)
  - Ovarian hyperstimulation syndrome [Recovered/Resolved]
